FAERS Safety Report 17968948 (Version 1)
Quarter: 2020Q3

REPORT INFORMATION
  Report Type: Spontaneous
  Country: US (occurrence: US)
  Receive Date: 20200701
  Receipt Date: 20200701
  Transmission Date: 20201103
  Serious: No
  Sender: FDA-Public Use
  Company Number: US-PFM-2019-05820

PATIENT
  Age: 11 Month
  Sex: Male

DRUGS (1)
  1. HEMANGEOL [Suspect]
     Active Substance: PROPRANOLOL HYDROCHLORIDE
     Indication: INFANTILE HAEMANGIOMA
     Dosage: 3.7 ML, BID (2/DAY)
     Route: 048

REACTIONS (2)
  - Insomnia [Recovering/Resolving]
  - Infantile spitting up [Recovering/Resolving]

NARRATIVE: CASE EVENT DATE: 20190513
